FAERS Safety Report 19750113 (Version 1)
Quarter: 2021Q3

REPORT INFORMATION
  Report Type: Spontaneous
  Country: US (occurrence: US)
  Receive Date: 20210826
  Receipt Date: 20210826
  Transmission Date: 20211014
  Serious: No
  Sender: FDA-Public Use
  Company Number: US-PFIZER INC-202100960181

PATIENT
  Age: 52 Year
  Sex: Female
  Weight: 115.67 kg

DRUGS (1)
  1. CELEBREX [Suspect]
     Active Substance: CELECOXIB
     Indication: ARTHRITIS
     Dosage: UNK

REACTIONS (6)
  - Cough [Unknown]
  - Pyrexia [Recovered/Resolved]
  - Malaise [Unknown]
  - Fatigue [Unknown]
  - Sinusitis [Unknown]
  - Headache [Not Recovered/Not Resolved]
